FAERS Safety Report 25002310 (Version 3)
Quarter: 2025Q2

REPORT INFORMATION
  Report Type: Spontaneous
  Country: US (occurrence: US)
  Receive Date: 20250224
  Receipt Date: 20250510
  Transmission Date: 20250717
  Serious: No
  Sender: SANOFI AVENTIS
  Company Number: US-SA-2025SA051586

PATIENT
  Age: 85 Year
  Sex: Female
  Weight: 71.77 kg

DRUGS (6)
  1. KEVZARA [Suspect]
     Active Substance: SARILUMAB
     Indication: Polymyalgia rheumatica
     Dosage: 200 MG, QOW
     Route: 058
     Dates: start: 20250207
  2. LOSARTAN POTASSIUM [Concomitant]
     Active Substance: LOSARTAN POTASSIUM
  3. PREDNISONE [Concomitant]
     Active Substance: PREDNISONE
  4. LETROZOLE [Concomitant]
     Active Substance: LETROZOLE
  5. PREDNISONE [Concomitant]
     Active Substance: PREDNISONE
  6. PANTOPRAZOLE SODIUM [Concomitant]
     Active Substance: PANTOPRAZOLE SODIUM

REACTIONS (7)
  - Brain fog [Not Recovered/Not Resolved]
  - Condition aggravated [Not Recovered/Not Resolved]
  - Ear pain [Unknown]
  - Ocular discomfort [Unknown]
  - Blood glucose increased [Unknown]
  - Blood triglycerides increased [Unknown]
  - Ear infection [Unknown]

NARRATIVE: CASE EVENT DATE: 20250101
